FAERS Safety Report 19034991 (Version 1)
Quarter: 2021Q1

REPORT INFORMATION
  Report Type: Spontaneous
  Country: US (occurrence: US)
  Receive Date: 20210320
  Receipt Date: 20210320
  Transmission Date: 20210420
  Serious: No
  Sender: FDA-Public Use
  Company Number: US-ASTRAZENECA-2021A131254

PATIENT
  Age: 44 Year
  Sex: Male
  Weight: 90.7 kg

DRUGS (7)
  1. PRILOSEC [Suspect]
     Active Substance: OMEPRAZOLE MAGNESIUM
     Indication: GASTROOESOPHAGEAL REFLUX DISEASE
     Dosage: DOSE AND FREQUENCY UNKNOWN
     Route: 048
  2. DEXALAN [Concomitant]
     Dosage: DOSE AND FREQUENCY UNKNOWN
     Route: 065
  3. NEXIUM [Suspect]
     Active Substance: ESOMEPRAZOLE MAGNESIUM
     Indication: GASTROOESOPHAGEAL REFLUX DISEASE
     Dosage: DOSE AND FREQUENCY UNKNOWN
     Route: 048
  4. PEPCID [Concomitant]
     Active Substance: FAMOTIDINE
     Dosage: DOSE AND FREQUENCY UNKNOWN
     Route: 065
  5. NEXIUM [Suspect]
     Active Substance: ESOMEPRAZOLE MAGNESIUM
     Indication: GASTROOESOPHAGEAL REFLUX DISEASE
     Dosage: DOSE AND FREQUENCY UNKNOWN
     Route: 048
  6. VITAMIN D3 [Concomitant]
     Active Substance: CHOLECALCIFEROL
     Dosage: DOSE AND FREQUENCY UNKNOWN
     Route: 065
  7. NEXIUM [Suspect]
     Active Substance: ESOMEPRAZOLE MAGNESIUM
     Indication: GASTROOESOPHAGEAL REFLUX DISEASE
     Route: 048
     Dates: start: 20210308

REACTIONS (24)
  - COVID-19 [Recovered/Resolved]
  - Upper-airway cough syndrome [Unknown]
  - Dry mouth [Recovered/Resolved]
  - Throat irritation [Recovered/Resolved]
  - Myalgia [Unknown]
  - Drug ineffective [Unknown]
  - Gastric disorder [Recovered/Resolved]
  - Multiple allergies [Unknown]
  - Pharyngeal erythema [Unknown]
  - Asthenia [Unknown]
  - Pain in extremity [Not Recovered/Not Resolved]
  - Obsessive-compulsive disorder [Unknown]
  - Agitation [Recovered/Resolved]
  - Hypoaesthesia [Not Recovered/Not Resolved]
  - Eye irritation [Unknown]
  - Feeling abnormal [Not Recovered/Not Resolved]
  - Haemoptysis [Recovered/Resolved]
  - Panic attack [Unknown]
  - Throat irritation [Unknown]
  - Nasopharyngitis [Unknown]
  - Anosmia [Recovering/Resolving]
  - Heart rate increased [Unknown]
  - Dry throat [Recovered/Resolved]
  - Taste disorder [Unknown]

NARRATIVE: CASE EVENT DATE: 2020
